FAERS Safety Report 4387563-X (Version None)
Quarter: 2004Q2

REPORT INFORMATION
  Report Type: 
  Country: None (occurrence: None)
  Receive Date: 20040630
  Receipt Date: 20040507
  Transmission Date: 20050107
  Serious: No
  Sender: FDA-Public Use
  Company Number: US-GLAXOSMITHKLINE-A0510013A

PATIENT
  Age: 64 Year
  Sex: Female

DRUGS (6)
  1. ADVAIR HFA [Suspect]
     Indication: ASTHMA
     Dosage: 1PUFF TWICE PER DAY
     Route: 055
     Dates: start: 20010101
  2. SINGULAIR [Concomitant]
  3. ALBUTEROL [Concomitant]
  4. ZYRTEC [Concomitant]
  5. MULTI-VITAMIN [Concomitant]
  6. CALCIUM SUPPLEMENT [Concomitant]

REACTIONS (1)
  - STOMATITIS [None]
